FAERS Safety Report 17293842 (Version 2)
Quarter: 2020Q1

REPORT INFORMATION
  Report Type: Spontaneous
  Country: US (occurrence: US)
  Receive Date: 20200121
  Receipt Date: 20200312
  Transmission Date: 20200409
  Serious: No
  Sender: FDA-Public Use
  Company Number: US-PFIZER INC-2017452759

PATIENT
  Age: 52 Year
  Sex: Male
  Weight: 108.84 kg

DRUGS (7)
  1. RAPAMUNE [Suspect]
     Active Substance: SIROLIMUS
     Indication: RENAL TRANSPLANT
     Dosage: 3 MG, DAILY (2 MG DAILY AND 1 MG DAILY TO EQUAL 3 MG DAILY)
     Route: 048
  2. ATENOLOL. [Concomitant]
     Active Substance: ATENOLOL
     Indication: HYPERTENSION
     Dosage: 50 MG, 1X/DAY
     Route: 048
     Dates: start: 2000
  3. PREDNISONE. [Concomitant]
     Active Substance: PREDNISONE
     Indication: RENAL DISORDER
     Dosage: 10 MG, ALTERNATE DAY
     Route: 048
     Dates: start: 1984
  4. ATENOLOL. [Concomitant]
     Active Substance: ATENOLOL
     Indication: BLOOD PRESSURE ABNORMAL
  5. RAPAMUNE [Suspect]
     Active Substance: SIROLIMUS
     Indication: SKIN CANCER
     Dosage: 4 MG, DAILY (2 TABS)
     Route: 048
  6. RAPAMUNE [Suspect]
     Active Substance: SIROLIMUS
     Dosage: 4 MG, 1X/DAY
     Dates: start: 2017
  7. RAPAMUNE [Suspect]
     Active Substance: SIROLIMUS
     Dosage: 2 MG, 2X/DAY
     Route: 048
     Dates: start: 201710

REACTIONS (3)
  - Off label use [Unknown]
  - Product use issue [Recovered/Resolved]
  - Product use in unapproved indication [Unknown]
